FAERS Safety Report 6519375-2 (Version None)
Quarter: 2009Q4

REPORT INFORMATION
  Report Type: 
  Country: None (occurrence: None)
  Receive Date: 20091224
  Receipt Date: 20091224
  Transmission Date: 20100525
  Serious: No
  Sender: FDA-Public Use
  Company Number: None

PATIENT
  Sex: Female
  Weight: 63.6397 kg

DRUGS (2)
  1. OXALIPLATIN [Suspect]
     Indication: COLON CANCER
     Dosage: 164MG - IVSS
     Route: 042
     Dates: start: 20091218
  2. OXALIPLATIN [Suspect]

REACTIONS (3)
  - CARDIAC FLUTTER [None]
  - FEELING HOT [None]
  - PALPITATIONS [None]
